FAERS Safety Report 10276745 (Version 2)
Quarter: 2014Q3

REPORT INFORMATION
  Report Type: Spontaneous
  Country: DE (occurrence: DE)
  Receive Date: 20140703
  Receipt Date: 20140715
  Transmission Date: 20150326
  Serious: Yes (Death, Congenital Anomaly, Other)
  Sender: FDA-Public Use
  Company Number: DE-ABBVIE-14P-062-1255892-00

PATIENT

DRUGS (1)
  1. EPROSARTAN [Suspect]
     Active Substance: EPROSARTAN
     Indication: MATERNAL EXPOSURE TIMING UNSPECIFIED
     Route: 064

REACTIONS (12)
  - Neonatal respiratory distress syndrome [Unknown]
  - Renal disorder [Unknown]
  - Intraventricular haemorrhage [Unknown]
  - Anomalous pulmonary venous connection [Unknown]
  - Foetal exposure during pregnancy [Unknown]
  - Joint contracture [Unknown]
  - Death neonatal [Fatal]
  - Foetal disorder [Unknown]
  - Patent ductus arteriosus [Unknown]
  - Congenital renal disorder [Unknown]
  - Pneumothorax [Unknown]
  - Atrial septal defect [Unknown]
